FAERS Safety Report 4758164-6 (Version None)
Quarter: 2005Q3

REPORT INFORMATION
  Report Type: 
  Country: None (occurrence: None)
  Receive Date: 20050829
  Receipt Date: 20050822
  Transmission Date: 20060218
  Serious: Yes (Other)
  Sender: FDA-Public Use
  Company Number: FRVA20050022

PATIENT
  Age: 32 Year
  Sex: Female

DRUGS (5)
  1. FROVATRIPTAN 2.5 MG    VERNALIS [Suspect]
     Indication: MIGRAINE
     Dosage: 2.5 MG BID PO
     Route: 048
     Dates: start: 20040329, end: 20040331
  2. FROVATRIPTAN  2.5 MG   VERNALIS [Suspect]
     Indication: MIGRAINE
     Dosage: 5 MG BID PO
     Route: 048
     Dates: start: 20040328, end: 20040328
  3. IBUPROFEN [Concomitant]
  4. RUTOSIDE [Concomitant]
  5. ASCORBIC ACID [Concomitant]

REACTIONS (2)
  - ABORTION SPONTANEOUS [None]
  - DRUG EXPOSURE DURING PREGNANCY [None]
